FAERS Safety Report 21610983 (Version 1)
Quarter: 2022Q4

REPORT INFORMATION
  Report Type: Spontaneous
  Country: CA (occurrence: CA)
  Receive Date: 20221117
  Receipt Date: 20221117
  Transmission Date: 20230112
  Serious: Yes (Death, Life-Threatening, Hospitalization, Other)
  Sender: FDA-Public Use
  Company Number: CA-MLMSERVICE-20210415-2838375-1

PATIENT
  Age: 24 Year
  Sex: Female

DRUGS (3)
  1. ACETAMINOPHEN [Suspect]
     Active Substance: ACETAMINOPHEN
     Indication: Product used for unknown indication
     Dosage: 50 G, SINGLE
     Route: 048
  2. MORPHINE [Concomitant]
     Active Substance: MORPHINE
     Indication: Product used for unknown indication
     Route: 048
  3. GABAPENTIN [Concomitant]
     Active Substance: GABAPENTIN
     Indication: Product used for unknown indication
     Route: 048

REACTIONS (15)
  - Acidosis [Fatal]
  - Hypoglycaemia [Fatal]
  - Lactic acidosis [Fatal]
  - Intentional overdose [Fatal]
  - Brain oedema [Fatal]
  - Acute kidney injury [Unknown]
  - Analgesic drug level increased [Recovered/Resolved]
  - Depressed level of consciousness [Fatal]
  - Encephalopathy [Fatal]
  - Metabolic acidosis [Fatal]
  - Acute hepatic failure [Fatal]
  - Cerebral haemorrhage [Fatal]
  - Diffuse axonal injury [Fatal]
  - Toxicity to various agents [Fatal]
  - Coagulopathy [Fatal]
